FAERS Safety Report 4279942-6 (Version None)
Quarter: 2004Q1

REPORT INFORMATION
  Report Type: 
  Country: None (occurrence: None)
  Receive Date: 20040126
  Receipt Date: 20040109
  Transmission Date: 20041129
  Serious: Yes (Hospitalization)
  Sender: FDA-Public Use
  Company Number: HQWYE223309JAN04

PATIENT
  Age: 80 Year
  Sex: Female

DRUGS (7)
  1. CONCOR (BISOPROLOL, TABLET) [Suspect]
     Indication: ESSENTIAL HYPERTENSION
     Dosage: 10 MG 1X PER 1 DAY ORAL
     Route: 048
     Dates: start: 20010101, end: 20030926
  2. TEGRETOL [Suspect]
     Indication: DIABETIC NEPHROPATHY
     Dosage: 600 MG 1X PER 1 DAY ORAL
     Route: 048
     Dates: start: 20021001, end: 20030926
  3. ACETYLSALICYLIC ACID SRT [Concomitant]
  4. CAPTOPRIL [Concomitant]
  5. HYDROCHLOROTHIAZIDE [Concomitant]
  6. INSUMAN (INSULIN HUMAN INJECTION, ISOPHANE/INSULIN ZINC PROTAMINE INJE [Concomitant]
  7. NORVASC [Concomitant]

REACTIONS (9)
  - AORTIC VALVE INCOMPETENCE [None]
  - ATRIOVENTRICULAR BLOCK SECOND DEGREE [None]
  - BUNDLE BRANCH BLOCK LEFT [None]
  - DILATATION VENTRICULAR [None]
  - DIZZINESS [None]
  - DRUG INTERACTION [None]
  - ELECTROCARDIOGRAM REPOLARISATION ABNORMALITY [None]
  - FALL [None]
  - MITRAL VALVE INCOMPETENCE [None]
